FAERS Safety Report 13371447 (Version 2)
Quarter: 2017Q2

REPORT INFORMATION
  Report Type: Report from Study
  Country: US (occurrence: US)
  Receive Date: 20170324
  Receipt Date: 20170411
  Transmission Date: 20170830
  Serious: Yes (Other)
  Sender: FDA-Public Use
  Company Number: US-JAZZ-2017-US-003385

PATIENT
  Sex: Male

DRUGS (13)
  1. PEPCID AC [Concomitant]
     Active Substance: FAMOTIDINE
  2. ALEVE [Concomitant]
     Active Substance: NAPROXEN SODIUM
  3. XYREM [Suspect]
     Active Substance: SODIUM OXYBATE
     Indication: CATAPLEXY
     Dosage: DOSE ADJUSTMENT
     Route: 048
     Dates: start: 201502, end: 201610
  4. ASPIRIN EC [Concomitant]
     Active Substance: ASPIRIN
  5. XYREM [Suspect]
     Active Substance: SODIUM OXYBATE
     Indication: NARCOLEPSY
     Dosage: 2.25 G, BID
     Route: 048
     Dates: start: 201502, end: 201502
  6. XYREM [Suspect]
     Active Substance: SODIUM OXYBATE
     Dosage: 3.5 G, BID
     Route: 048
     Dates: start: 201610, end: 201703
  7. XYREM [Suspect]
     Active Substance: SODIUM OXYBATE
     Dosage: 4.5 G, BID
     Route: 048
     Dates: start: 201703
  8. TYLENOL PM EXTRA STRENGTH [Concomitant]
     Active Substance: ACETAMINOPHEN\DIPHENHYDRAMINE HYDROCHLORIDE
  9. NUVIGIL [Concomitant]
     Active Substance: ARMODAFINIL
  10. COLCRYS [Concomitant]
     Active Substance: COLCHICINE
  11. AMLODIPINE BENAZEPRIL [Concomitant]
     Active Substance: AMLODIPINE BESYLATE\BENAZEPRIL HYDROCHLORIDE
  12. CENTRUM SILVER                     /02363801/ [Concomitant]
     Active Substance: MINERALS\VITAMINS
  13. VENLAFAXINE HCL [Concomitant]
     Active Substance: VENLAFAXINE HYDROCHLORIDE

REACTIONS (8)
  - Vitamin D deficiency [Unknown]
  - Depression [Unknown]
  - Hallucination [Recovering/Resolving]
  - Gout [Unknown]
  - Dyspepsia [Recovering/Resolving]
  - Malaise [Unknown]
  - Memory impairment [Unknown]
  - Arthritis [Unknown]

NARRATIVE: CASE EVENT DATE: 2016
